FAERS Safety Report 12586464 (Version 1)
Quarter: 2016Q3

REPORT INFORMATION
  Report Type: Spontaneous
  Country: US (occurrence: US)
  Receive Date: 20160725
  Receipt Date: 20160725
  Transmission Date: 20161109
  Serious: No
  Sender: FDA-Public Use
  Company Number: US-PFIZER INC-2016320502

PATIENT
  Age: 79 Year
  Sex: Female

DRUGS (10)
  1. LEVEMIR [Concomitant]
     Active Substance: INSULIN DETEMIR
     Indication: DIABETES MELLITUS
     Dosage: 100UNITS INJECTED IN THE MORNING
  2. OMEPRAZOLE. [Concomitant]
     Active Substance: OMEPRAZOLE
     Indication: GASTRIC DISORDER
     Dosage: 20MG TABLET IN THE MORNING BEFORE SHE EATS
  3. IPROTROPIUM BROMIDE/ALBUTEROL [Concomitant]
     Indication: ASTHMA
     Dosage: [IPRATROPIUM BROMIDE]/[ALBUTEROL] BREATHING TREAMENT TWICE A DAY
  4. NOVOLIN R [Concomitant]
     Active Substance: INSULIN HUMAN
     Indication: DIABETES MELLITUS
     Dosage: SLIDING SCALE IN THE EVENING IF NEEDED
  5. METOPROLOL. [Concomitant]
     Active Substance: METOPROLOL
     Indication: ANGINA PECTORIS
     Dosage: 25MG TABLET, HALF TABLET IN THE MORNING AND IN THE EVENING
  6. CELEBREX [Suspect]
     Active Substance: CELECOXIB
     Indication: PAIN IN EXTREMITY
  7. BABY ASPIRIN [Concomitant]
     Active Substance: ASPIRIN
     Dosage: UNK
  8. CELEBREX [Suspect]
     Active Substance: CELECOXIB
     Indication: BACK PAIN
     Dosage: 200MG TABLETS, TAKE ON TABLET BY MOUTH 12 HOURS APART
     Route: 048
     Dates: start: 2014
  9. ALLOPURINOL. [Concomitant]
     Active Substance: ALLOPURINOL
     Indication: GOUT
     Dosage: 100 MG, 1X/DAY
     Route: 048
  10. LOVASTATIN. [Concomitant]
     Active Substance: LOVASTATIN
     Indication: BLOOD CHOLESTEROL ABNORMAL
     Dosage: 40MG TABLET BY MOUTH ONCE A DAY IN THE EVEVEING
     Route: 048

REACTIONS (4)
  - Fall [Unknown]
  - Hypoaesthesia [Not Recovered/Not Resolved]
  - Sensory loss [Unknown]
  - Accommodation disorder [Unknown]

NARRATIVE: CASE EVENT DATE: 2014
